FAERS Safety Report 13521972 (Version 1)
Quarter: 2017Q2

REPORT INFORMATION
  Report Type: Spontaneous
  Country: None (occurrence: US)
  Receive Date: 20170505
  Receipt Date: 20170505
  Transmission Date: 20170830
  Serious: No
  Sender: FDA-Public Use
  Company Number: None

PATIENT
  Age: 62 Year
  Sex: Male

DRUGS (2)
  1. TASIGNA [Suspect]
     Active Substance: NILOTINIB
     Dosage: 2 CAPSULES = 300MG/1 CAPSULE = AM/PM BY MOUTH
     Route: 048
     Dates: start: 20170421
  2. TASIGNA [Suspect]
     Active Substance: NILOTINIB
     Indication: MYELOID LEUKAEMIA
     Dosage: 2 CAPSULES = 300MG TWICE A DAY BY MOUTH
     Route: 048
     Dates: start: 20160817, end: 20170421

REACTIONS (2)
  - Therapy change [None]
  - Pancreatitis [None]

NARRATIVE: CASE EVENT DATE: 20170415
